FAERS Safety Report 21045924 (Version 1)
Quarter: 2022Q3

REPORT INFORMATION
  Report Type: Spontaneous
  Country: SE (occurrence: SE)
  Receive Date: 20220706
  Receipt Date: 20220706
  Transmission Date: 20221027
  Serious: Yes (Hospitalization)
  Sender: FDA-Public Use
  Company Number: None

PATIENT
  Age: 75 Year
  Sex: Male

DRUGS (14)
  1. GENTAMICIN [Suspect]
     Active Substance: GENTAMICIN
     Indication: Endocarditis enterococcal
     Route: 065
     Dates: start: 20220421, end: 20220518
  2. ALFUZOSIN [Concomitant]
     Active Substance: ALFUZOSIN
     Indication: Product used for unknown indication
  3. METOPROLOL [Concomitant]
     Active Substance: METOPROLOL
     Indication: Product used for unknown indication
  4. XYLOPROCT [Concomitant]
     Indication: Product used for unknown indication
     Dosage: DOSE 1
  5. MINIDERM [Concomitant]
     Indication: Product used for unknown indication
     Dosage: 1X2
  6. TOLTERODINE [Concomitant]
     Active Substance: TOLTERODINE
     Indication: Product used for unknown indication
  7. PRADAXA [Concomitant]
     Active Substance: DABIGATRAN ETEXILATE MESYLATE
     Indication: Product used for unknown indication
     Dosage: 1X2
  8. AMPICILLIN SODIUM [Concomitant]
     Active Substance: AMPICILLIN SODIUM
     Indication: Product used for unknown indication
     Dates: start: 20220421, end: 20220518
  9. ENTRESTO [Concomitant]
     Active Substance: SACUBITRIL\VALSARTAN
     Indication: Product used for unknown indication
     Dosage: STRENGTH: 24 MG/26 MG
  10. BONDIL [Concomitant]
     Indication: Product used for unknown indication
     Dosage: 1000 UG, IF NECESSARY, DOSE 1
  11. SILDENAFIL [Concomitant]
     Active Substance: SILDENAFIL
     Indication: Product used for unknown indication
     Dosage: 100 MG, IF NECESSARY, DOSE 1
  12. SPIRONOLACTONE [Concomitant]
     Active Substance: SPIRONOLACTONE
     Indication: Product used for unknown indication
  13. INVICORP [Concomitant]
     Indication: Product used for unknown indication
     Dosage: 25 UG/2 MG, IF NECESSARY, DOSE 1
  14. ALLOPURINOL [Concomitant]
     Active Substance: ALLOPURINOL
     Indication: Product used for unknown indication

REACTIONS (6)
  - Haemoglobin decreased [Unknown]
  - Neutrophil count decreased [Unknown]
  - Drug hypersensitivity [Unknown]
  - Pyrexia [Unknown]
  - Platelet count decreased [Unknown]
  - Eosinophil count increased [Unknown]

NARRATIVE: CASE EVENT DATE: 20220101
